FAERS Safety Report 6296389-1 (Version None)
Quarter: 2009Q3

REPORT INFORMATION
  Report Type: 
  Country: None (occurrence: None)
  Receive Date: 20090804
  Receipt Date: 20090727
  Transmission Date: 20100115
  Serious: Yes (Other)
  Sender: FDA-Public Use
  Company Number: GR-ASTRAZENECA-2009SE05612

PATIENT
  Age: 63 Year
  Sex: Female
  Weight: 85 kg

DRUGS (1)
  1. NEXIUM [Suspect]
     Indication: GASTROOESOPHAGEAL REFLUX DISEASE
     Route: 048
     Dates: start: 20090706, end: 20090708

REACTIONS (3)
  - DERMATITIS EXFOLIATIVE [None]
  - PHOTOSENSITIVITY REACTION [None]
  - RASH VESICULAR [None]
